FAERS Safety Report 10575754 (Version 7)
Quarter: 2015Q2

REPORT INFORMATION
  Report Type: Spontaneous
  Country: US (occurrence: US)
  Receive Date: 20141111
  Receipt Date: 20150514
  Transmission Date: 20150821
  Serious: No
  Sender: FDA-Public Use
  Company Number: US-PFIZER INC-2014305938

PATIENT
  Age: 61 Year
  Sex: Male
  Weight: 122 kg

DRUGS (10)
  1. ALPRAZOLAM. [Concomitant]
     Active Substance: ALPRAZOLAM
     Indication: SLEEP DISORDER
     Dosage: 1 MG, 1-2 TABLETS AS NEEDED
  2. LYRICA [Suspect]
     Active Substance: PREGABALIN
     Indication: DIABETIC NEUROPATHY
     Dosage: 300 MG, DAILY (TWO CAPSULES A DAY)
     Route: 048
  3. XANAX [Concomitant]
     Active Substance: ALPRAZOLAM
     Indication: ANXIETY
  4. WARFARIN [Concomitant]
     Active Substance: WARFARIN
     Dosage: 5 MG, 1X/DAY
  5. LYRICA [Suspect]
     Active Substance: PREGABALIN
     Indication: DIABETIC NEUROPATHY
     Dosage: 1 DF, 3X/DAY
     Route: 048
     Dates: start: 20110519
  6. PRAVASTATIN [Concomitant]
     Active Substance: PRAVASTATIN\PRAVASTATIN SODIUM
     Dosage: 40 MG, 1X/DAY (BEDTIME)
  7. XANAX [Concomitant]
     Active Substance: ALPRAZOLAM
     Indication: INSOMNIA
  8. METFORMIN [Concomitant]
     Active Substance: METFORMIN HYDROCHLORIDE
     Indication: BLOOD GLUCOSE ABNORMAL
     Dosage: 1000 MG, 2X/DAY
  9. DILTIAZEM [Concomitant]
     Active Substance: DILTIAZEM
     Dosage: 120 MG, 1X/DAY
  10. METOPROLOL [Concomitant]
     Active Substance: METOPROLOL
     Dosage: 100 MG, 2X/DAY

REACTIONS (15)
  - Gait disturbance [Unknown]
  - Balance disorder [Unknown]
  - Anxiety [Unknown]
  - Drug withdrawal syndrome [Unknown]
  - Feeling abnormal [Recovered/Resolved]
  - Eating disorder [Unknown]
  - Irritability [Unknown]
  - Hypoaesthesia [Unknown]
  - Condition aggravated [Unknown]
  - Insomnia [Unknown]
  - Pain [Unknown]
  - Visual acuity reduced [Unknown]
  - Drug effect incomplete [Unknown]
  - Headache [Unknown]
  - Fall [Unknown]

NARRATIVE: CASE EVENT DATE: 201411
